FAERS Safety Report 15995080 (Version 3)
Quarter: 2019Q1

REPORT INFORMATION
  Report Type: Spontaneous
  Country: KR (occurrence: KR)
  Receive Date: 20190222
  Receipt Date: 20190308
  Transmission Date: 20190418
  Serious: Yes (Death, Other)
  Sender: FDA-Public Use
  Company Number: KR-009507513-1902KOR007666

PATIENT
  Sex: Male

DRUGS (4)
  1. LUTHIONE [Concomitant]
     Dosage: UNK
     Dates: start: 20190126, end: 20190126
  2. NYSTATIN. [Concomitant]
     Active Substance: NYSTATIN
     Dosage: UNK, QUANTITY 10
     Dates: start: 20190107, end: 20190127
  3. DENOGAN [Concomitant]
     Active Substance: PROPACETAMOL HYDROCHLORIDE
     Dosage: UNK, QUANTITY 7
     Dates: start: 20190112, end: 20190130
  4. KEYTRUDA [Suspect]
     Active Substance: PEMBROLIZUMAB
     Indication: LUNG NEOPLASM MALIGNANT
     Dosage: UNK
     Dates: start: 20190126

REACTIONS (2)
  - Pneumonia [Unknown]
  - Malignant neoplasm progression [Fatal]

NARRATIVE: CASE EVENT DATE: 20190126
